FAERS Safety Report 18505283 (Version 2)
Quarter: 2020Q4

REPORT INFORMATION
  Report Type: Spontaneous
  Country: JP (occurrence: JP)
  Receive Date: 20201116
  Receipt Date: 20201208
  Transmission Date: 20210114
  Serious: Yes (Other)
  Sender: FDA-Public Use
  Company Number: JP-BIOVITRUM-2020JP5598

PATIENT
  Age: 5 Month
  Sex: Male

DRUGS (16)
  1. INTRALIPOS [Concomitant]
     Active Substance: SOYBEAN OIL
  2. NAFAMOSTAT [Concomitant]
     Active Substance: NAFAMOSTAT
  3. FENTANYL. [Concomitant]
     Active Substance: FENTANYL
  4. SODIUM BENZOATE [Concomitant]
     Active Substance: SODIUM BENZOATE
  5. MONILAC [Concomitant]
     Active Substance: LACTULOSE
  6. OMEPRAZOLE. [Concomitant]
     Active Substance: OMEPRAZOLE
  7. ARGININE [Concomitant]
     Active Substance: ARGININE
  8. URSODEOXYCHOLIC ACID [Concomitant]
     Active Substance: URSODIOL
  9. NITISINONE [Suspect]
     Active Substance: NITISINONE
     Indication: TYROSINAEMIA
     Route: 050
     Dates: start: 20200917
  10. LEVOCARNITINE. [Concomitant]
     Active Substance: LEVOCARNITINE
  11. NITISINONE [Suspect]
     Active Substance: NITISINONE
     Route: 050
  12. VOLVIX [Concomitant]
  13. MIDAZOLAM. [Concomitant]
     Active Substance: MIDAZOLAM
  14. URALYT [Concomitant]
  15. ALFAROL [Concomitant]
     Active Substance: ALFACALCIDOL
  16. GASMOTIN [Concomitant]
     Active Substance: MOSAPRIDE CITRATE

REACTIONS (7)
  - Off label use [Not Recovered/Not Resolved]
  - Bacterial infection [Recovered/Resolved]
  - Wrong technique in product usage process [Not Recovered/Not Resolved]
  - Product use issue [Not Recovered/Not Resolved]
  - Liver transplant [Recovered/Resolved]
  - Hypothyroidism [Unknown]
  - Amino acid level increased [Unknown]

NARRATIVE: CASE EVENT DATE: 20200917
